FAERS Safety Report 4845323-7 (Version None)
Quarter: 2005Q4

REPORT INFORMATION
  Report Type: 
  Country: None (occurrence: None)
  Receive Date: 20051205
  Receipt Date: 20051124
  Transmission Date: 20060501
  Serious: Yes (Life-Threatening)
  Sender: FDA-Public Use
  Company Number: JP-JPN-A20052860

PATIENT
  Sex: Male
  Weight: 1.9 kg

DRUGS (1)
  1. PAXIL [Suspect]
     Dosage: 10MG PER DAY
     Dates: end: 20051119

REACTIONS (7)
  - DRUG EXPOSURE DURING PREGNANCY [None]
  - DYSPEPSIA [None]
  - GASTROINTESTINAL HYPOMOTILITY [None]
  - HYPOGLYCAEMIA NEONATAL [None]
  - INFANTILE APNOEIC ATTACK [None]
  - PREMATURE BABY [None]
  - TACHYPNOEA [None]
